FAERS Safety Report 25594097 (Version 1)
Quarter: 2025Q3

REPORT INFORMATION
  Report Type: Spontaneous
  Country: EU (occurrence: EU)
  Receive Date: 20250723
  Receipt Date: 20250723
  Transmission Date: 20251021
  Serious: Yes (Life-Threatening, Hospitalization, Other)
  Sender: AUROBINDO
  Company Number: EU-BFARM-25004918

PATIENT
  Age: 72 Year
  Sex: Female

DRUGS (3)
  1. MEROPENEM [Suspect]
     Active Substance: MEROPENEM
     Indication: Urinary tract infection
     Dosage: 1000 MILLIGRAM, 3 TIMES A DAY (1000MG 3X TGL.)
     Route: 042
     Dates: start: 20250621, end: 20250627
  2. MOUNJARO [Concomitant]
     Active Substance: TIRZEPATIDE
     Indication: Type 2 diabetes mellitus
     Dosage: 2.5 MILLIGRAM, EVERY WEEK (2.5MG / WEEK LAST ON JUNE 25TH.)
     Route: 065
     Dates: start: 202505
  3. MOUNJARO [Concomitant]
     Active Substance: TIRZEPATIDE
     Indication: Obesity

REACTIONS (7)
  - Acute kidney injury [Recovering/Resolving]
  - Anuria [Recovering/Resolving]
  - Dehydration [Recovering/Resolving]
  - Hypersensitivity [Recovering/Resolving]
  - Blister [Recovering/Resolving]
  - Erythema [Recovering/Resolving]
  - Skin weeping [Recovering/Resolving]

NARRATIVE: CASE EVENT DATE: 20250601
